FAERS Safety Report 6052830-0 (Version None)
Quarter: 2009Q1

REPORT INFORMATION
  Report Type: 
  Country: None (occurrence: None)
  Receive Date: 20090127
  Receipt Date: 20070531
  Transmission Date: 20090719
  Serious: Yes (Death, Life-Threatening, Hospitalization, Other)
  Sender: FDA-Public Use
  Company Number: FR-PFIZER INC-2009157615

PATIENT

DRUGS (3)
  1. IRINOTECAN HCL [Suspect]
     Indication: GASTRIC CANCER
  2. FLUOROURACIL [Suspect]
     Indication: GASTRIC CANCER
  3. FOLINIC ACID [Suspect]
     Indication: GASTRIC CANCER

REACTIONS (4)
  - FEBRILE NEUTROPENIA [None]
  - HAEMORRHAGIC DISORDER [None]
  - MUCOSAL INFLAMMATION [None]
  - THROMBOCYTOPENIA [None]
